FAERS Safety Report 7851042-5 (Version None)
Quarter: 2011Q4

REPORT INFORMATION
  Report Type: 
  Country: None (occurrence: None)
  Receive Date: 20111024
  Receipt Date: 20111011
  Transmission Date: 20120403
  Serious: Yes (Hospitalization, Other)
  Sender: FDA-Public Use
  Company Number: CIP110000504

PATIENT
  Age: 82 Year
  Sex: Female

DRUGS (14)
  1. COUMADIN [Concomitant]
  2. GLUCOSAMINE [Concomitant]
  3. FOSAMAX [Suspect]
     Dosage: 70 MG ONCE WEEKLY, ORAL
     Route: 048
     Dates: start: 20040701, end: 20100701
  4. CALCIUM [Concomitant]
  5. FOSAMAX [Suspect]
     Indication: OSTEOPENIA
     Dosage: 10 MG DAILY, ORAL
     Route: 048
     Dates: start: 20010918, end: 20030801
  6. IMIPRAMINE [Concomitant]
  7. CLOBETASOL 0.05% (CLOBETASOL PROPIONATE) [Concomitant]
  8. CIPRO [Concomitant]
  9. HYDROCORTISONE [Concomitant]
  10. DETROL LA [Concomitant]
  11. ACTONEL [Suspect]
     Dosage: 35 MG ONCE WEEKLY, ORAL
     Route: 048
     Dates: start: 20030823, end: 20050601
  12. COZAAR [Concomitant]
  13. ALPRAZOLAM [Concomitant]
  14. ASPIRIN [Concomitant]

REACTIONS (14)
  - PATHOLOGICAL FRACTURE [None]
  - ARTHRALGIA [None]
  - ANAEMIA POSTOPERATIVE [None]
  - VOMITING [None]
  - FRACTURE DELAYED UNION [None]
  - THYROID OPERATION [None]
  - OEDEMA PERIPHERAL [None]
  - FRACTURED SACRUM [None]
  - EMOTIONAL DISTRESS [None]
  - FRACTURE DISPLACEMENT [None]
  - BACK PAIN [None]
  - FEMUR FRACTURE [None]
  - IMPAIRED HEALING [None]
  - FALL [None]
